FAERS Safety Report 6762573-3 (Version None)
Quarter: 2010Q2

REPORT INFORMATION
  Report Type: 
  Country: None (occurrence: None)
  Receive Date: 20100609
  Receipt Date: 20100528
  Transmission Date: 20101027
  Serious: Yes (Other)
  Sender: FDA-Public Use
  Company Number: NL-PFIZER INC-2010067238

PATIENT
  Sex: Male

DRUGS (1)
  1. DALACIN [Suspect]
     Dosage: 600 MG, 3X/DAY
     Dates: start: 20100101

REACTIONS (1)
  - SPINAL CORD OEDEMA [None]
